FAERS Safety Report 9813031 (Version 1)
Quarter: 2014Q1

REPORT INFORMATION
  Report Type: Spontaneous
  Country: US (occurrence: None)
  Receive Date: 20140109
  Receipt Date: 20140109
  Transmission Date: 20141002
  Serious: Yes (Other)
  Sender: FDA-Public Use
  Company Number: None

PATIENT
  Age: 26 Year
  Sex: Male
  Weight: 79.38 kg

DRUGS (1)
  1. MEFLOQUINE [Suspect]
     Indication: MALARIA PROPHYLAXIS
     Dosage: 1 TAB WEEKLY TAKEN BY MOUTH
     Route: 048

REACTIONS (18)
  - Anger [None]
  - Depression [None]
  - Mood altered [None]
  - Confusional state [None]
  - Sleep disorder [None]
  - Agitation [None]
  - Nightmare [None]
  - Flashback [None]
  - Paranoia [None]
  - Restlessness [None]
  - Suicidal ideation [None]
  - Homicidal ideation [None]
  - Amnesia [None]
  - Dizziness [None]
  - Headache [None]
  - Tinnitus [None]
  - Vertigo [None]
  - Disturbance in attention [None]
